FAERS Safety Report 5060347-5 (Version None)
Quarter: 2006Q3

REPORT INFORMATION
  Report Type: 
  Country: None (occurrence: None)
  Receive Date: 20060720
  Receipt Date: 20060713
  Transmission Date: 20061208
  Serious: Yes (Hospitalization, Disabling)
  Sender: FDA-Public Use
  Company Number: 2006-02922

PATIENT
  Age: 12 Year
  Sex: Female
  Weight: 43.4 kg

DRUGS (2)
  1. PREDNISOLONE [Suspect]
     Indication: ACUTE LYMPHOCYTIC LEUKAEMIA
     Dosage: TOTAL DOSE: 10,549MG/M2
  2. ELSPAR [Concomitant]

REACTIONS (2)
  - OSTEONECROSIS [None]
  - WHEELCHAIR USER [None]
